FAERS Safety Report 4727886-5 (Version None)
Quarter: 2005Q3

REPORT INFORMATION
  Report Type: 
  Country: None (occurrence: None)
  Receive Date: 20050728
  Receipt Date: 20050210
  Transmission Date: 20060218
  Serious: Yes (Death, Hospitalization)
  Sender: FDA-Public Use
  Company Number: FR-MERCK-0502FRA00047

PATIENT
  Age: 36 Year
  Sex: Male

DRUGS (5)
  1. CANCIDAS [Suspect]
     Indication: SEPTIC SHOCK
     Route: 042
     Dates: start: 20041229, end: 20050111
  2. PRIMAXIN [Concomitant]
     Indication: SEPTIC SHOCK
     Route: 042
     Dates: start: 20050103, end: 20050111
  3. SULFAMETHOXAZOLE AND TRIMETHOPRIM [Concomitant]
     Indication: SEPTIC SHOCK
     Route: 042
     Dates: start: 20050103
  4. VANCOMYCIN [Concomitant]
     Indication: SEPTIC SHOCK
     Route: 042
     Dates: start: 20050103, end: 20050112
  5. FOSCARNET SODIUM [Concomitant]
     Indication: SEPTIC SHOCK
     Route: 042
     Dates: start: 20050103

REACTIONS (5)
  - CANDIDA SEPSIS [None]
  - CHOLESTASIS [None]
  - COAGULOPATHY [None]
  - HEPATITIS [None]
  - MULTI-ORGAN FAILURE [None]
